FAERS Safety Report 5018267-8 (Version None)
Quarter: 2006Q2

REPORT INFORMATION
  Report Type: 
  Country: None (occurrence: None)
  Receive Date: 20060530
  Receipt Date: 20060517
  Transmission Date: 20061013
  Serious: Yes (Disabling)
  Sender: FDA-Public Use
  Company Number: 384601

PATIENT
  Age: 19 Year
  Sex: Female
  Weight: 63.5 kg

DRUGS (3)
  1. ACCUTANE [Suspect]
     Indication: ACNE
     Dosage: 40 MG 1 PER DAY ORAL
     Route: 048
     Dates: start: 20011221, end: 20020119
  2. AMOCILLIN (AMOXICILLIN) [Concomitant]
  3. DEPO-PROVERA [Concomitant]

REACTIONS (32)
  - APHTHOUS STOMATITIS [None]
  - ARTHRALGIA [None]
  - COLITIS [None]
  - COLITIS PSEUDOMEMBRANOUS [None]
  - COLITIS ULCERATIVE [None]
  - EOSINOPHIL COUNT INCREASED [None]
  - EOSINOPHIL PERCENTAGE INCREASED [None]
  - EPISTAXIS [None]
  - GASTROINTESTINAL DISORDER [None]
  - HAEMATOCRIT INCREASED [None]
  - HAEMOGLOBIN INCREASED [None]
  - HAEMORRHOIDS [None]
  - HEADACHE [None]
  - INFLAMMATORY BOWEL DISEASE [None]
  - INTESTINAL HAEMORRHAGE [None]
  - IRRITABLE BOWEL SYNDROME [None]
  - MEAN CELL HAEMOGLOBIN CONCENTRATION INCREASED [None]
  - MIDDLE INSOMNIA [None]
  - MONOCYTE COUNT INCREASED [None]
  - MULTI-ORGAN DISORDER [None]
  - NAUSEA [None]
  - NERVOUSNESS [None]
  - NEUTROPHIL COUNT INCREASED [None]
  - ORAL INTAKE REDUCED [None]
  - PLATELET COUNT DECREASED [None]
  - PLATELET COUNT INCREASED [None]
  - PROCTITIS ULCERATIVE [None]
  - PROCTOCOLITIS [None]
  - RED CELL DISTRIBUTION WIDTH DECREASED [None]
  - RED CELL DISTRIBUTION WIDTH INCREASED [None]
  - SINUSITIS [None]
  - THERAPY NON-RESPONDER [None]
